FAERS Safety Report 6203065-X (Version None)
Quarter: 2009Q2

REPORT INFORMATION
  Report Type: 
  Country: None (occurrence: None)
  Receive Date: 20090521
  Receipt Date: 20090521
  Transmission Date: 20091009
  Serious: No
  Sender: FDA-Public Use
  Company Number: None

PATIENT
  Age: 25 Year
  Sex: Female
  Weight: 92.9874 kg

DRUGS (2)
  1. EFFEXOR XR [Suspect]
     Indication: DEPRESSION
     Dosage: 37.5 MG 1X EVERY OTHER DAY PO
     Route: 048
     Dates: start: 20081024, end: 20090520
  2. VENLAFAXINE HCL [Concomitant]

REACTIONS (5)
  - DISTURBANCE IN ATTENTION [None]
  - DIZZINESS [None]
  - PARAESTHESIA [None]
  - VISION BLURRED [None]
  - WITHDRAWAL SYNDROME [None]
